FAERS Safety Report 4538394-9 (Version None)
Quarter: 2004Q4

REPORT INFORMATION
  Report Type: 
  Country: None (occurrence: None)
  Receive Date: 20041223
  Receipt Date: 20041223
  Transmission Date: 20050328
  Serious: Yes (Hospitalization)
  Sender: FDA-Public Use
  Company Number: None

PATIENT
  Age: 72 Year
  Sex: Male
  Weight: 61.6892 kg

DRUGS (1)
  1. HEPARIN [Suspect]

REACTIONS (1)
  - CATHETER SITE HAEMORRHAGE [None]
